FAERS Safety Report 22185658 (Version 4)
Quarter: 2023Q2

REPORT INFORMATION
  Report Type: Report from Study
  Country: FR (occurrence: FR)
  Receive Date: 20230407
  Receipt Date: 20230529
  Transmission Date: 20230721
  Serious: Yes (Hospitalization)
  Sender: FDA-Public Use
  Company Number: FR-SA-SAC20230403001343

PATIENT
  Age: 56 Year
  Sex: Male
  Weight: 78 kg

DRUGS (12)
  1. ISATUXIMAB [Suspect]
     Active Substance: ISATUXIMAB
     Indication: Minimal residual disease
     Dosage: 10 MG/KG, D1, D8, D15, D22
     Route: 042
     Dates: start: 20230316, end: 20230316
  2. ISATUXIMAB [Suspect]
     Active Substance: ISATUXIMAB
     Dosage: 10 MG/KG, D1, D8, D15, D22
     Route: 042
     Dates: start: 20230324, end: 20230324
  3. ISATUXIMAB [Suspect]
     Active Substance: ISATUXIMAB
     Dosage: 10 MG/KG, D1, D8, D15, D22
     Route: 042
     Dates: start: 20230426, end: 20230426
  4. CARFILZOMIB [Suspect]
     Active Substance: CARFILZOMIB
     Indication: Minimal residual disease
     Dosage: 56 MG/M2, D1, 15
     Route: 042
     Dates: start: 20230316, end: 20230316
  5. CARFILZOMIB [Suspect]
     Active Substance: CARFILZOMIB
     Dosage: 56 MG/M2, D1,15
     Route: 042
     Dates: start: 20230324, end: 20230324
  6. CARFILZOMIB [Suspect]
     Active Substance: CARFILZOMIB
     Dosage: 56 MG/M2, D1, D8, AND D15
     Route: 042
     Dates: start: 20230428, end: 20230428
  7. LENALIDOMIDE [Suspect]
     Active Substance: LENALIDOMIDE
     Indication: Minimal residual disease
     Dosage: 25 MG
     Route: 048
     Dates: start: 20230316, end: 20230316
  8. LENALIDOMIDE [Suspect]
     Active Substance: LENALIDOMIDE
     Dosage: 25 MG
     Route: 048
     Dates: start: 20230324, end: 20230324
  9. LENALIDOMIDE [Suspect]
     Active Substance: LENALIDOMIDE
     Dosage: 15 MG
     Route: 048
     Dates: start: 20230502, end: 20230502
  10. DEXAMETHASONE [Suspect]
     Active Substance: DEXAMETHASONE
     Indication: Minimal residual disease
     Dosage: 40 MG, D1, D8, D15, D22
     Route: 048
     Dates: start: 20230316, end: 20230316
  11. DEXAMETHASONE [Suspect]
     Active Substance: DEXAMETHASONE
     Dosage: 40 MG, D1, D8, D15, D22
     Route: 048
     Dates: start: 20230324, end: 20230324
  12. DEXAMETHASONE [Suspect]
     Active Substance: DEXAMETHASONE
     Dosage: 40 MG
     Route: 048
     Dates: start: 20230428, end: 20230428

REACTIONS (2)
  - Acute kidney injury [Recovered/Resolved]
  - Febrile neutropenia [Recovered/Resolved]

NARRATIVE: CASE EVENT DATE: 20230331
